FAERS Safety Report 4461816-9 (Version None)
Quarter: 2004Q3

REPORT INFORMATION
  Report Type: 
  Country: None (occurrence: None)
  Receive Date: 20040929
  Receipt Date: 20031023
  Transmission Date: 20050211
  Serious: No
  Sender: FDA-Public Use
  Company Number: US-GLAXOSMITHKLINE-A0431420A

PATIENT
  Age: 60 Year
  Sex: Female

DRUGS (7)
  1. SEREVENT [Suspect]
     Indication: ASTHMA
     Dosage: 1PUFF TWICE PER DAY
     Route: 055
     Dates: start: 20031015, end: 20031017
  2. ADVAIR DISKUS 100/50 [Suspect]
     Route: 055
     Dates: start: 20031017
  3. ALBUTEROL [Concomitant]
  4. FLOVENT [Concomitant]
  5. ATROVENT [Concomitant]
  6. SYNTHROID [Concomitant]
  7. NAPROXEN [Concomitant]

REACTIONS (2)
  - CHEST PAIN [None]
  - HEART RATE INCREASED [None]
